FAERS Safety Report 4560745-X (Version None)
Quarter: 2005Q1

REPORT INFORMATION
  Report Type: 
  Country: None (occurrence: None)
  Receive Date: 20050121
  Receipt Date: 20041228
  Transmission Date: 20050727
  Serious: Yes (Death, Other)
  Sender: FDA-Public Use
  Company Number: CA_050107599

PATIENT
  Age: 64 Year
  Sex: Female

DRUGS (2)
  1. ZYPREXA [Suspect]
     Indication: AGITATION
     Dates: start: 20041001
  2. VALPROATE SODIUM [Concomitant]

REACTIONS (3)
  - CEREBROVASCULAR ACCIDENT [None]
  - PNEUMONIA [None]
  - WEIGHT INCREASED [None]
